FAERS Safety Report 7576090-4 (Version None)
Quarter: 2011Q2

REPORT INFORMATION
  Report Type: 
  Country: None (occurrence: None)
  Receive Date: 20110623
  Receipt Date: 20110623
  Transmission Date: 20111010
  Serious: Yes (Other)
  Sender: FDA-Public Use
  Company Number: None

PATIENT
  Age: 76 Year
  Sex: Female
  Weight: 79.3795 kg

DRUGS (1)
  1. ACTONEL [Suspect]
     Indication: OSTEOPOROSIS
     Dosage: 1 BY MOUTH 1 A MONTH MOUTH
     Route: 048
     Dates: start: 20100401, end: 20110201

REACTIONS (2)
  - OSTEONECROSIS OF JAW [None]
  - TOOTH FRACTURE [None]
